FAERS Safety Report 6814861-X (Version None)
Quarter: 2010Q3

REPORT INFORMATION
  Report Type: 
  Country: None (occurrence: None)
  Receive Date: 20100702
  Receipt Date: 20100628
  Transmission Date: 20110219
  Serious: Yes (Hospitalization)
  Sender: FDA-Public Use
  Company Number: B0662655A

PATIENT
  Sex: Female

DRUGS (9)
  1. AUGMENTIN '125' [Suspect]
     Indication: BRONCHITIS
     Dosage: 3G PER DAY
     Route: 042
     Dates: start: 20100319, end: 20100324
  2. EXELON [Suspect]
     Route: 048
     Dates: start: 20091001, end: 20100325
  3. SECTRAL [Concomitant]
     Dosage: 200MG TWICE PER DAY
     Route: 048
     Dates: end: 20100319
  4. NEXIUM [Concomitant]
     Dosage: 40MG PER DAY
     Route: 048
  5. SEROPLEX [Concomitant]
     Dosage: 15MG PER DAY
     Route: 048
  6. LASIX [Concomitant]
     Dosage: 20MG PER DAY
     Route: 048
  7. IDEOS [Concomitant]
     Indication: OSTEOPOROSIS
     Dosage: 500MG PER DAY
     Route: 048
  8. FOSAMAX [Concomitant]
     Indication: OSTEOPOROSIS
     Dosage: 70MG WEEKLY
     Route: 048
  9. SOLUPRED [Concomitant]
     Indication: BRONCHITIS
     Dosage: 40MG PER DAY
     Route: 048
     Dates: start: 20100318, end: 20100319

REACTIONS (2)
  - CONDITION AGGRAVATED [None]
  - DIARRHOEA [None]
